FAERS Safety Report 18415534 (Version 1)
Quarter: 2020Q4

REPORT INFORMATION
  Report Type: Spontaneous
  Country: US (occurrence: US)
  Receive Date: 20201021
  Receipt Date: 20201021
  Transmission Date: 20210114
  Serious: No
  Sender: FDA-Public Use
  Company Number: None

PATIENT
  Age: 80 Year
  Sex: Female

DRUGS (8)
  1. DEXILANT [Suspect]
     Active Substance: DEXLANSOPRAZOLE
     Dates: start: 2020, end: 20200717
  2. VITAMIN D [Concomitant]
     Active Substance: VITAMIN D NOS
  3. GAVISION [Concomitant]
  4. VITAMIN B12 [Concomitant]
     Active Substance: CYANOCOBALAMIN
  5. SYNTHROID [Concomitant]
     Active Substance: LEVOTHYROXINE SODIUM
  6. PRAVASTATIN. [Concomitant]
     Active Substance: PRAVASTATIN
  7. MULTIVITAMIN [Concomitant]
     Active Substance: VITAMINS
  8. BREO-ZITIA [Concomitant]

REACTIONS (3)
  - Nausea [None]
  - Pain in extremity [None]
  - Dry mouth [None]

NARRATIVE: CASE EVENT DATE: 20200416
